FAERS Safety Report 14761844 (Version 1)
Quarter: 2018Q2

REPORT INFORMATION
  Report Type: Spontaneous
  Country: GB (occurrence: GB)
  Receive Date: 20180416
  Receipt Date: 20180416
  Transmission Date: 20180711
  Serious: Yes (Hospitalization, Disabling, Other)
  Sender: FDA-Public Use
  Company Number: GB-TEVA-2018-GB-881589

PATIENT
  Age: 87 Year
  Sex: Male
  Weight: 82 kg

DRUGS (13)
  1. HUMULIN M3 [Concomitant]
     Active Substance: INSULIN HUMAN
     Route: 065
  2. OXYBUTYNIN HYDROCHLORIDE [Suspect]
     Active Substance: OXYBUTYNIN CHLORIDE
     Indication: POLLAKIURIA
     Dosage: 5 MILLIGRAM DAILY;
     Route: 048
     Dates: end: 20171121
  3. RAMIPRIL. [Concomitant]
     Active Substance: RAMIPRIL
     Route: 065
  4. ATENOLOL. [Concomitant]
     Active Substance: ATENOLOL
     Route: 065
  5. THIAMINE. [Concomitant]
     Active Substance: THIAMINE
     Route: 065
  6. VITAMIN B COMPLEX STRONG [Concomitant]
     Route: 065
  7. DOCUSATE [Concomitant]
     Active Substance: DOCUSATE
     Route: 065
  8. ISOSORBIDE MONONITRATE. [Concomitant]
     Active Substance: ISOSORBIDE MONONITRATE
     Route: 065
  9. PARACETAMOL [Concomitant]
     Active Substance: ACETAMINOPHEN
     Route: 065
  10. ANORO ELLIPTA [Concomitant]
     Active Substance: UMECLIDINIUM BROMIDE\VILANTEROL TRIFENATATE
     Route: 065
  11. BISACODYL. [Concomitant]
     Active Substance: BISACODYL
     Route: 065
  12. SIMVASTATIN. [Concomitant]
     Active Substance: SIMVASTATIN
     Route: 065
  13. LANSOPRAZOLE. [Concomitant]
     Active Substance: LANSOPRAZOLE
     Route: 065

REACTIONS (1)
  - Sinus node dysfunction [Not Recovered/Not Resolved]

NARRATIVE: CASE EVENT DATE: 20171119
